FAERS Safety Report 4505308-7 (Version None)
Quarter: 2004Q4

REPORT INFORMATION
  Report Type: 
  Country: None (occurrence: None)
  Receive Date: 20041015
  Receipt Date: 20040603
  Transmission Date: 20050328
  Serious: Yes (Other)
  Sender: FDA-Public Use
  Company Number: 2004031558

PATIENT
  Age: 37 Year
  Sex: Male

DRUGS (6)
  1. NEURONTIN [Suspect]
     Indication: PAIN
     Dosage: 900 MG (300 MG, 3 IN 1 D), ORAL
     Route: 048
     Dates: start: 20040401
  2. OXYCODONE HYDROCHLORIDE AND ACETAMINOPHEN [Concomitant]
  3. VICODIN [Concomitant]
  4. ROFECOXIB [Concomitant]
  5. AMITRIPTYLINE HCL [Concomitant]
  6. CYCLOBENZAPRINE HCL [Concomitant]

REACTIONS (7)
  - DYSPHONIA [None]
  - HYPERSENSITIVITY [None]
  - LOCAL SWELLING [None]
  - PAIN [None]
  - PHARYNGOLARYNGEAL PAIN [None]
  - SWELLING FACE [None]
  - UPPER RESPIRATORY TRACT INFECTION [None]
